FAERS Safety Report 5253140-1 (Version None)
Quarter: 2007Q1

REPORT INFORMATION
  Report Type: 
  Country: None (occurrence: None)
  Receive Date: 20070301
  Receipt Date: 20070221
  Transmission Date: 20070707
  Serious: Yes (Hospitalization)
  Sender: FDA-Public Use
  Company Number: FR-GLAXOSMITHKLINE-B0459726A

PATIENT
  Age: 86 Year
  Sex: Male

DRUGS (3)
  1. AUGMENTIN '125' [Suspect]
     Indication: CELLULITIS
     Dosage: 3G PER DAY
     Route: 042
     Dates: start: 20061113
  2. AUGMENTIN '125' [Suspect]
     Indication: CELLULITIS
     Dosage: 3G PER DAY
     Route: 048
     Dates: end: 20061203
  3. DOXYCYCLINE HYCLATE [Concomitant]
     Indication: CELLULITIS
     Dosage: 200MG PER DAY
     Route: 048
     Dates: start: 20061113, end: 20061203

REACTIONS (4)
  - CHOLESTASIS [None]
  - HEPATITIS [None]
  - HEPATOCELLULAR DAMAGE [None]
  - JAUNDICE [None]
